FAERS Safety Report 8773297 (Version 2)
Quarter: 2012Q4

REPORT INFORMATION
  Report Type: 
  Country: ES (occurrence: ES)
  Receive Date: 20120907
  Receipt Date: 20121101
  Transmission Date: 20130627
  Serious: Yes (Death)
  Sender: FDA-Public Use
  Company Number: ES-NOVOPROD-359169

PATIENT
  Age: 58 Year

DRUGS (1)
  1. VICTOZA [Suspect]
     Indication: TYPE 2 DIABETES MELLITUS
     Dosage: UNK
     Route: 065
     Dates: start: 201203, end: 20120510

REACTIONS (2)
  - Completed suicide [Fatal]
  - Depressive symptom [Recovered/Resolved]
